FAERS Safety Report 13461839 (Version 3)
Quarter: 2017Q2

REPORT INFORMATION
  Report Type: Spontaneous
  Country: US (occurrence: US)
  Receive Date: 20170420
  Receipt Date: 20170524
  Transmission Date: 20170830
  Serious: No
  Sender: FDA-Public Use
  Company Number: US-GLAXOSMITHKLINE-US2017053716

PATIENT
  Sex: Female
  Weight: 71.66 kg

DRUGS (1)
  1. VENTOLIN HFA [Suspect]
     Active Substance: ALBUTEROL SULFATE
     Indication: PRODUCT USED FOR UNKNOWN INDICATION
     Dosage: 2 PUFF(S), PRN
     Dates: start: 20170330

REACTIONS (6)
  - Drug ineffective [Unknown]
  - Drug effect decreased [Unknown]
  - Underdose [Unknown]
  - Product use issue [Unknown]
  - Inhalation therapy [Unknown]
  - Intentional product use issue [Unknown]
